FAERS Safety Report 12700494 (Version 1)
Quarter: 2016Q3

REPORT INFORMATION
  Report Type: Spontaneous
  Country: US (occurrence: US)
  Receive Date: 20160830
  Receipt Date: 20160830
  Transmission Date: 20161109
  Serious: No
  Sender: FDA-Public Use
  Company Number: US-SA-2016SA072834

PATIENT
  Age: 45 Year
  Sex: Male
  Weight: 89.8 kg

DRUGS (23)
  1. FABRAZYME [Suspect]
     Active Substance: AGALSIDASE BETA
     Indication: FABRY^S DISEASE
     Route: 041
  2. AMOXICILLIN. [Concomitant]
     Active Substance: AMOXICILLIN
     Dates: start: 20100907
  3. SOLU-MEDROL [Concomitant]
     Active Substance: METHYLPREDNISOLONE SODIUM SUCCINATE
     Indication: ANAPHYLACTIC REACTION
     Dosage: DOSE:40 MILLIGRAM(S)/MILLILITRE
     Dates: start: 20150521
  4. EPIPEN [Concomitant]
     Active Substance: EPINEPHRINE
     Indication: ANAPHYLACTIC REACTION
     Dates: start: 20150521
  5. VITAMIN D [Concomitant]
     Active Substance: CHOLECALCIFEROL
     Dates: start: 20100908
  6. LIDOCAINE/PRILOCAINE [Concomitant]
     Dates: start: 20100908
  7. TYLENOL [Concomitant]
     Active Substance: ACETAMINOPHEN
     Dates: start: 20101122
  8. CRESTOR [Concomitant]
     Active Substance: ROSUVASTATIN CALCIUM
     Dates: start: 20100908
  9. L-M-X [Concomitant]
     Indication: PREMEDICATION
     Route: 061
     Dates: start: 20150521
  10. OXYCONTIN [Concomitant]
     Active Substance: OXYCODONE HYDROCHLORIDE
     Dates: start: 20100908
  11. MUPIROCIN. [Concomitant]
     Active Substance: MUPIROCIN
     Dates: start: 20111014
  12. AZITHROMYCIN ANHYDROUS. [Concomitant]
     Active Substance: AZITHROMYCIN ANHYDROUS
     Dates: start: 20141219
  13. DEMADEX [Concomitant]
     Active Substance: TORSEMIDE
     Dates: start: 20141219
  14. FABRAZYME [Suspect]
     Active Substance: AGALSIDASE BETA
     Indication: FABRY^S DISEASE
     Route: 041
  15. VALIUM [Concomitant]
     Active Substance: DIAZEPAM
     Dates: start: 20100507
  16. NORMAL SALINE [Concomitant]
     Active Substance: SODIUM CHLORIDE
     Dates: start: 20150521
  17. ASPIRIN. [Concomitant]
     Active Substance: ASPIRIN
     Dates: start: 20120530
  18. DIAZEPAM. [Concomitant]
     Active Substance: DIAZEPAM
     Dates: start: 20100908
  19. SPIRONOLACTONE. [Concomitant]
     Active Substance: SPIRONOLACTONE
     Dates: start: 20100908
  20. SODIUM CHLORIDE. [Concomitant]
     Active Substance: SODIUM CHLORIDE
     Dates: start: 20150521
  21. LISINOPRIL. [Concomitant]
     Active Substance: LISINOPRIL
     Dosage: DOSE:2000 UNIT(S)
     Dates: start: 20100907
  22. CALCIUM [Concomitant]
     Active Substance: CALCIUM
     Dates: start: 20100908
  23. DIPHENHYDRAMINE. [Concomitant]
     Active Substance: DIPHENHYDRAMINE
     Indication: ANAPHYLACTIC REACTION
     Dosage: DOSE:50 MILLIGRAM(S)/MILLILITRE
     Dates: start: 20150521

REACTIONS (1)
  - Nasopharyngitis [Unknown]
